FAERS Safety Report 12427728 (Version 1)
Quarter: 2016Q2

REPORT INFORMATION
  Report Type: Spontaneous
  Country: US (occurrence: None)
  Receive Date: 20160601
  Receipt Date: 20160601
  Transmission Date: 20160815
  Serious: No
  Sender: FDA-Public Use
  Company Number: None

PATIENT
  Sex: Male

DRUGS (3)
  1. GLIPIRIDE [Suspect]
     Active Substance: GLIMEPIRIDE
  2. METFORMIN [Suspect]
     Active Substance: METFORMIN HYDROCHLORIDE
  3. LEVEMIR [Suspect]
     Active Substance: INSULIN DETEMIR

REACTIONS (1)
  - Diabetes mellitus inadequate control [None]
